FAERS Safety Report 5475455-4 (Version None)
Quarter: 2007Q3

REPORT INFORMATION
  Report Type: 
  Country: None (occurrence: None)
  Receive Date: 20070924
  Receipt Date: 20061211
  Transmission Date: 20080115
  Serious: Yes (Hospitalization, Other)
  Sender: FDA-Public Use
  Company Number: 2006104162

PATIENT
  Age: 64 Year
  Sex: Female
  Weight: 54.4 kg

DRUGS (5)
  1. DILANTIN [Suspect]
     Indication: CONVULSION PROPHYLAXIS
     Dosage: (500 MG), INTRAVENOUS; 300 MG (300 MG, AT HS), ORAL
     Route: 042
     Dates: start: 20041108
  2. DILANTIN [Suspect]
     Indication: CONVULSION PROPHYLAXIS
     Dosage: (500 MG), INTRAVENOUS; 300 MG (300 MG, AT HS), ORAL
     Route: 042
     Dates: start: 20041123
  3. DECADRON [Concomitant]
  4. PROTONIX [Concomitant]
  5. LORTAB [Concomitant]

REACTIONS (9)
  - ABDOMINAL PAIN UPPER [None]
  - ANXIETY [None]
  - CHROMATURIA [None]
  - DRUG HYPERSENSITIVITY [None]
  - FAECES PALE [None]
  - LIVER FUNCTION TEST ABNORMAL [None]
  - NAUSEA [None]
  - PYREXIA [None]
  - STEVENS-JOHNSON SYNDROME [None]
